FAERS Safety Report 15458005 (Version 6)
Quarter: 2020Q1

REPORT INFORMATION
  Report Type: Spontaneous
  Country: US (occurrence: US)
  Receive Date: 20181003
  Receipt Date: 20200114
  Transmission Date: 20200409
  Serious: No
  Sender: FDA-Public Use
  Company Number: US-BIOGEN-2018BI00632078

PATIENT
  Age: 51 Year
  Sex: Male

DRUGS (8)
  1. NEURONTIN [Concomitant]
     Active Substance: GABAPENTIN
     Route: 048
  2. PRED FORTE [Concomitant]
     Active Substance: PREDNISOLONE ACETATE
     Dosage: 1 DROP IN EYE TWICE A DAY
     Route: 047
  3. VIAGRA [Concomitant]
     Active Substance: SILDENAFIL CITRATE
     Dosage: AS NEEDED
     Route: 048
  4. TYSABRI [Suspect]
     Active Substance: NATALIZUMAB
     Indication: MULTIPLE SCLEROSIS
     Dosage: INFUSED OVER 1 WEEK
     Route: 050
     Dates: start: 20131017
  5. ADDERALL [Concomitant]
     Active Substance: AMPHETAMINE ASPARTATE\AMPHETAMINE SULFATE\DEXTROAMPHETAMINE SACCHARATE\DEXTROAMPHETAMINE SULFATE
     Route: 048
  6. ZOLOFT [Concomitant]
     Active Substance: SERTRALINE HYDROCHLORIDE
     Route: 048
  7. PEPCID [Concomitant]
     Active Substance: FAMOTIDINE
     Dosage: AS NEEDED
     Route: 048
  8. SUDAFED [Concomitant]
     Active Substance: PSEUDOEPHEDRINE HYDROCHLORIDE
     Route: 048

REACTIONS (4)
  - Blood pressure systolic increased [Unknown]
  - Herpes zoster [Not Recovered/Not Resolved]
  - Decreased immune responsiveness [Unknown]
  - Respiratory rate increased [Unknown]

NARRATIVE: CASE EVENT DATE: 20180829
